FAERS Safety Report 9285419 (Version 1)
Quarter: 2013Q2

REPORT INFORMATION
  Report Type: Spontaneous
  Country: US (occurrence: US)
  Receive Date: 20130513
  Receipt Date: 20130513
  Transmission Date: 20140414
  Serious: Yes (Other)
  Sender: FDA-Public Use
  Company Number: US-PFIZER INC-2013145692

PATIENT
  Age: 64 Year
  Sex: Female
  Weight: 60 kg

DRUGS (20)
  1. LYRICA [Suspect]
     Indication: FIBROMYALGIA
     Dosage: 75 MG, 2X/DAY
     Route: 048
     Dates: start: 1998
  2. CELEBREX [Suspect]
     Indication: ARTHRITIS
     Dosage: 200 MG, 2X/DAY
     Route: 048
     Dates: start: 1998
  3. CELEBREX [Suspect]
     Indication: OSTEOARTHRITIS
  4. NEXIUM [Concomitant]
     Indication: GASTROOESOPHAGEAL REFLUX DISEASE
     Dosage: 40 MG, 2X/DAY
     Route: 048
  5. TRAZODONE [Concomitant]
     Dosage: 100 MG, 4X/DAY
     Route: 048
  6. CLONAZEPAM [Concomitant]
     Dosage: 0.5 MG, EVERY SIX HOURS A DAY
     Route: 048
  7. CARISOPRODOL [Concomitant]
     Indication: MUSCLE RELAXANT THERAPY
     Dosage: 350 MG, 4X/DAY
     Route: 048
  8. ESTRADIOL [Concomitant]
     Dosage: 0.5 MG, 1X/DAY
     Route: 048
  9. HYDROMORPHONE [Concomitant]
     Dosage: 8 MG, 4X/DAY
     Route: 048
  10. CYMBALTA [Concomitant]
     Dosage: 30 MG, 1X/DAY
     Route: 048
  11. SUMATRIPTAN [Concomitant]
     Dosage: 100 MG, 1X/DAY
     Route: 048
  12. FUROSEMIDE [Concomitant]
     Indication: LOCAL SWELLING
     Dosage: 20 MG, AS NEEDED
     Route: 048
  13. POTASSIUM CHLORIDE [Concomitant]
     Indication: LOCAL SWELLING
     Dosage: 10 MEQ, AS NEEDED
     Route: 048
  14. HYDROXYZINE [Concomitant]
     Indication: PRURITUS
     Dosage: 50 MG, AS NEEDED
     Route: 048
  15. VITAMIN D2 [Concomitant]
     Dosage: 50000 IU, WEEKLY
     Route: 048
  16. LIDODERM [Concomitant]
     Dosage: 5 %, UNK
  17. MUPIROCIN [Concomitant]
     Dosage: UNK, 2X/DAY
     Route: 061
  18. METHYLPHENIDATE [Concomitant]
     Dosage: 20 MG, 4X/DAY
     Route: 048
  19. IPRATROPIUM [Concomitant]
     Dosage: 0.06 %, AS NEEDED
     Route: 045
  20. PROMETHAZINE [Concomitant]
     Indication: NAUSEA
     Dosage: 25 MG, AS NEEDED
     Route: 048

REACTIONS (2)
  - Renal failure [Unknown]
  - Blood potassium increased [Recovered/Resolved]
